FAERS Safety Report 23882271 (Version 3)
Quarter: 2024Q3

REPORT INFORMATION
  Report Type: Report from Study
  Country: PT (occurrence: PT)
  Receive Date: 20240522
  Receipt Date: 20240705
  Transmission Date: 20241017
  Serious: Yes (Other)
  Sender: ABBVIE
  Company Number: PT-ABBVIE-5618710

PATIENT
  Age: 77 Year
  Sex: Male

DRUGS (12)
  1. CARBIDOPA\LEVODOPA [Suspect]
     Active Substance: CARBIDOPA\LEVODOPA
     Indication: Parkinson^s disease
     Dosage: 20 MG + 5 MG?FREQUENCY TEXT: MORN:4;MAINT:4CC/H;EXTRA:3CC
     Route: 050
     Dates: start: 20230807
  2. CARBIDOPA\LEVODOPA [Suspect]
     Active Substance: CARBIDOPA\LEVODOPA
     Dosage: 20 MG + 5 MG?FREQUENCY TEXT: MORN:7.5;MAINT:2.6CC/H;EXTRA:1CC
     Route: 050
     Dates: start: 20210831
  3. CARBIDOPA\LEVODOPA [Suspect]
     Active Substance: CARBIDOPA\LEVODOPA
     Dosage: 20 MG + 5 MG
     Route: 050
  4. CARBIDOPA\LEVODOPA [Suspect]
     Active Substance: CARBIDOPA\LEVODOPA
     Dosage: 20 MG + 5 MG?FREQUENCY TEXT: MORN:4;MAINT:4.2CC/H;EXTRA:3CC
     Route: 050
  5. MEMANTINE [Concomitant]
     Active Substance: MEMANTINE
     Indication: Product used for unknown indication
     Dosage: 1 TABLET? FORM STRENGTH: 20 MILLIGRAM? FREQUENCY TEXT: AT 07H30 AM? START DATE TEXT: BEFORE DUODOPA
     Route: 048
  6. PAROXETINE [Concomitant]
     Active Substance: PAROXETINE
     Indication: Product used for unknown indication
     Dosage: 1 TABLET?FORM STRENGTH: 10 MILLIGRAM?FREQUENCY TEXT: AT 07H30 AM?START DATE TEXT: BEFORE DUODOPA
     Route: 048
  7. RIVASTIGMINE [Concomitant]
     Active Substance: RIVASTIGMINE
     Indication: Product used for unknown indication
     Dosage: 13.3?START DATE TEXT: BEFORE DUODOPA
     Route: 062
  8. SINEMET CR [Concomitant]
     Active Substance: CARBIDOPA\LEVODOPA
     Indication: Product used for unknown indication
     Dosage: 1 TABLET?FREQUENCY TEXT: AT 10 PM?START DATE TEXT: BEFORE DUODOPA
     Route: 048
  9. CLOZAPINE [Concomitant]
     Active Substance: CLOZAPINE
     Indication: Product used for unknown indication
     Dosage: 2.25 TABLET,?FORM STRENGTH: 25 MILLIGRAM?FREQUENCY TEXT: 1/4 AT 8AM;1/4 LUNCH;2 TABLETS BEDTIME?S...
     Route: 048
  10. FERRO BIVALENTE [Concomitant]
     Indication: Blood iron decreased
     Route: 042
     Dates: start: 202406, end: 202406
  11. TRAZODONE [Concomitant]
     Active Substance: TRAZODONE HYDROCHLORIDE
     Indication: Product used for unknown indication
     Dosage: 1 TABLET?FORM STRENGTH: 100 MILLIGRAM?FREQUENCY TEXT: AT 10PM?START DATE TEXT: BEFORE DUODOPA
     Route: 048
  12. MAGNESIUM [Suspect]
     Active Substance: MAGNESIUM
     Indication: Product used for unknown indication
     Route: 065

REACTIONS (7)
  - Large intestine polyp [Not Recovered/Not Resolved]
  - Vitamin B12 increased [Recovered/Resolved]
  - Blood folate increased [Recovered/Resolved]
  - Vitamin B6 decreased [Recovered/Resolved]
  - Diarrhoea [Recovered/Resolved]
  - Diarrhoea [Recovered/Resolved]
  - Blood iron decreased [Recovered/Resolved]

NARRATIVE: CASE EVENT DATE: 20240101
